FAERS Safety Report 9036938 (Version 1)
Quarter: 2013Q1

REPORT INFORMATION
  Report Type: Spontaneous
  Country: GB (occurrence: None)
  Receive Date: 20130109
  Receipt Date: 20130109
  Transmission Date: 20140127
  Serious: Yes (Disabling, Other)
  Sender: FDA-Public Use
  Company Number: 2013034354

PATIENT
  Age: 19 Year
  Sex: Female

DRUGS (1)
  1. PRIVIGEN [Suspect]
     Indication: POLYMYOSITIS
     Route: 042
     Dates: start: 20120719, end: 20120808

REACTIONS (6)
  - Meningitis aseptic [None]
  - Pyrexia [None]
  - Headache [None]
  - Malaise [None]
  - Incorrect drug administration rate [None]
  - Device malfunction [None]
